FAERS Safety Report 14623642 (Version 1)
Quarter: 2018Q1

REPORT INFORMATION
  Report Type: Spontaneous
  Country: FR (occurrence: FR)
  Receive Date: 20180312
  Receipt Date: 20180312
  Transmission Date: 20180509
  Serious: Yes (Hospitalization)
  Sender: FDA-Public Use
  Company Number: FR-BAXTER-2018BAX007273

PATIENT
  Age: 22 Year
  Sex: Male
  Weight: 60 kg

DRUGS (4)
  1. HOLOXAN 2000 MG, POUDRE POUR USAGE PARENT?RAL [Suspect]
     Active Substance: IFOSFAMIDE
     Indication: OSTEOSARCOMA
     Dosage: POWDER FOR PARENTERAL USE
     Route: 042
     Dates: start: 20171206, end: 20171208
  2. ETOPOSIDE MYLAN [Suspect]
     Active Substance: ETOPOSIDE
     Route: 042
     Dates: start: 20171206, end: 20171208
  3. HOLOXAN 2000 MG, POUDRE POUR USAGE PARENT?RAL [Suspect]
     Active Substance: IFOSFAMIDE
     Dosage: POWDER FOR PARENTERAL USE
     Route: 042
     Dates: start: 20171206, end: 20171208
  4. ETOPOSIDE MYLAN [Suspect]
     Active Substance: ETOPOSIDE
     Indication: OSTEOSARCOMA
     Route: 042
     Dates: start: 20171206, end: 20171208

REACTIONS (5)
  - Ejection fraction decreased [Not Recovered/Not Resolved]
  - Hepatocellular injury [Recovering/Resolving]
  - Bone marrow failure [Recovering/Resolving]
  - Renal tubular disorder [Recovered/Resolved]
  - Rash maculo-papular [Recovering/Resolving]

NARRATIVE: CASE EVENT DATE: 20171210
